FAERS Safety Report 8009501-0 (Version None)
Quarter: 2011Q4

REPORT INFORMATION
  Report Type: 
  Country: None (occurrence: None)
  Receive Date: 20111227
  Receipt Date: 20111221
  Transmission Date: 20120403
  Serious: Yes (Hospitalization)
  Sender: FDA-Public Use
  Company Number: FR-ABBOTT-11P-056-0883788-00

PATIENT
  Age: 9 Year
  Sex: Female

DRUGS (5)
  1. VALPROIC ACID [Suspect]
     Indication: PRODUCT USED FOR UNKNOWN INDICATION
     Route: 048
     Dates: start: 20090101, end: 20111108
  2. LAMOTRIGINE [Suspect]
     Dates: start: 20111109
  3. URBANYL [Concomitant]
     Indication: PRODUCT USED FOR UNKNOWN INDICATION
  4. VALPROIC ACID [Suspect]
     Dates: start: 20111109
  5. LAMOTRIGINE [Suspect]
     Indication: PRODUCT USED FOR UNKNOWN INDICATION
     Dates: start: 20090101, end: 20111108

REACTIONS (7)
  - ABDOMINAL PAIN [None]
  - DRUG LEVEL INCREASED [None]
  - MALAISE [None]
  - WEIGHT DECREASED [None]
  - VOMITING [None]
  - ASTHENIA [None]
  - HEADACHE [None]
